FAERS Safety Report 24455901 (Version 2)
Quarter: 2024Q4

REPORT INFORMATION
  Report Type: Report from Study
  Country: US (occurrence: US)
  Receive Date: 20241017
  Receipt Date: 20241018
  Transmission Date: 20250115
  Serious: No
  Sender: ROCHE
  Company Number: US-ROCHE-3502408

PATIENT
  Age: 62 Year
  Sex: Male

DRUGS (7)
  1. RITUXAN [Suspect]
     Active Substance: RITUXIMAB
     Indication: Granulomatosis with polyangiitis
     Dosage: DATE OF TREATMENT: 15/SEP/2020?STRENGHT: 375 MG/M2
     Route: 041
     Dates: start: 2020
  2. ACETAMINOPHEN [Concomitant]
     Active Substance: ACETAMINOPHEN
     Dosage: 650 MG ORAL
  3. DIPHENHYDRAMINE [Concomitant]
     Active Substance: DIPHENHYDRAMINE
     Dosage: 25 MG
  4. SOLU-MEDROL [Concomitant]
     Active Substance: METHYLPREDNISOLONE SODIUM SUCCINATE
     Dosage: 125 MG IV
  5. ATROPINE [Concomitant]
     Active Substance: ATROPINE
     Dosage: 0.5 MG
  6. LEVALBUTEROL [Concomitant]
     Active Substance: LEVALBUTEROL
     Dosage: 1.25 MG
  7. OXYGEN [Concomitant]
     Active Substance: OXYGEN

REACTIONS (1)
  - Chest discomfort [Recovered/Resolved]
